FAERS Safety Report 24640270 (Version 2)
Quarter: 2025Q3

REPORT INFORMATION
  Report Type: Report from Study
  Country: ZA (occurrence: ZA)
  Receive Date: 20241120
  Receipt Date: 20250809
  Transmission Date: 20251020
  Serious: Yes (Hospitalization)
  Sender: ALEXION PHARMACEUTICALS
  Company Number: ZA-AstraZeneca-CH-00746114A

PATIENT
  Age: 66 Year
  Sex: Male

DRUGS (9)
  1. BUDESONIDE\FORMOTEROL [Suspect]
     Active Substance: BUDESONIDE\FORMOTEROL
     Indication: Asthma
  2. UNSPECIFIED INGREDIENT [Suspect]
     Active Substance: UNSPECIFIED INGREDIENT
     Indication: Asthma
     Route: 065
  3. Ap Loratadine [Concomitant]
     Indication: Hypersensitivity
  4. BISOPROLOL [Concomitant]
     Active Substance: BISOPROLOL
     Indication: Hypertension
  5. LYRICA [Concomitant]
     Active Substance: PREGABALIN
     Indication: Epilepsy
  6. LYRICA [Concomitant]
     Active Substance: PREGABALIN
  7. Synaleve [Concomitant]
     Indication: Pain
  8. ATORVASTATIN [Concomitant]
     Active Substance: ATORVASTATIN
     Indication: Blood cholesterol
  9. ECOTRIN [Concomitant]
     Active Substance: ASPIRIN

REACTIONS (1)
  - Intervertebral disc disorder [Unknown]
